FAERS Safety Report 16641902 (Version 1)
Quarter: 2019Q3

REPORT INFORMATION
  Report Type: Spontaneous
  Country: DE (occurrence: DE)
  Receive Date: 20190729
  Receipt Date: 20190729
  Transmission Date: 20191004
  Serious: Yes (Hospitalization)
  Sender: FDA-Public Use
  Company Number: DE-PFIZER INC-2019321886

PATIENT
  Age: 61 Year
  Sex: Female
  Weight: 116 kg

DRUGS (8)
  1. ZOPICLONE [Concomitant]
     Active Substance: ZOPICLONE
     Dosage: 5 MG, QD (0-0-0-1)
     Route: 048
  2. BISOPROLOL [Concomitant]
     Active Substance: BISOPROLOL
     Dosage: 5 MG, QD (1-0-0-0)
     Route: 048
  3. RISPERDAL [Suspect]
     Active Substance: RISPERIDONE
     Dosage: 3 MG, BID (1-0-1-0)
     Route: 048
  4. TRAZODONE [Concomitant]
     Active Substance: TRAZODONE HYDROCHLORIDE
     Dosage: 100 MG (0-0-0-0.5)
     Route: 048
  5. RAMIPRIL. [Suspect]
     Active Substance: RAMIPRIL
     Dosage: 5 MG, QD (1-0-0-0)
     Route: 048
  6. SPIRIVA [Concomitant]
     Active Substance: TIOTROPIUM BROMIDE MONOHYDRATE
     Dosage: 18 UNK, QD (1-0-0-0)
     Route: 055
  7. SEROQUEL [Suspect]
     Active Substance: QUETIAPINE FUMARATE
     Dosage: 400 MG, BID (1-0-1-0)
     Route: 048
  8. VIANI [Concomitant]
     Active Substance: FLUTICASONE PROPIONATE\SALMETEROL XINAFOATE
     Dosage: UNK UNK, BID (1-0-1-0)
     Route: 055

REACTIONS (6)
  - Electrolyte imbalance [Unknown]
  - Cough [Unknown]
  - Fatigue [Unknown]
  - Face oedema [Unknown]
  - Product prescribing error [Unknown]
  - Listless [Unknown]
